FAERS Safety Report 7100891-X (Version None)
Quarter: 2010Q4

REPORT INFORMATION
  Report Type: 
  Country: None (occurrence: None)
  Receive Date: 20101113
  Receipt Date: 20100329
  Transmission Date: 20110411
  Serious: Yes (Other)
  Sender: FDA-Public Use
  Company Number: US-ALLERGAN-1004136US

PATIENT
  Age: 46 Year
  Sex: Female

DRUGS (1)
  1. BOTOX COSMETIC [Suspect]
     Indication: SKIN WRINKLING
     Dosage: 24 UNITS, SINGLE
     Dates: start: 20100323, end: 20100323

REACTIONS (7)
  - HYPERHIDROSIS [None]
  - HYPOAESTHESIA FACIAL [None]
  - INJECTION SITE ERYTHEMA [None]
  - PYREXIA [None]
  - SENSATION OF HEAVINESS [None]
  - SWELLING FACE [None]
  - WRONG TECHNIQUE IN DRUG USAGE PROCESS [None]
